FAERS Safety Report 6821138 (Version 2)
Quarter: 2013Q1

REPORT INFORMATION
  Report Type: Spontaneous
  Country: JP (occurrence: JP)
  Receive Date: 20081125
  Receipt Date: 20130207
  Transmission Date: 20140127
  Serious: Yes (Hospitalization)
  Sender: FDA-Public Use
  Company Number: JP-BAXTER-2008BH012617

PATIENT
  Age: 63 None
  Sex: Male
  Weight: 52.7 kg

DRUGS (19)
  1. ADVATE 2000 [Suspect]
     Indication: SURGERY
     Route: 042
     Dates: start: 20080930, end: 20081001
  2. ADVATE [Suspect]
     Indication: HAEMOSTASIS
     Route: 042
     Dates: start: 20081007, end: 20081007
  3. ADVATE [Suspect]
     Route: 042
     Dates: start: 20081008, end: 20081008
  4. ADVATE [Suspect]
     Route: 042
     Dates: start: 20081009, end: 20081014
  5. ADVATE [Suspect]
     Route: 042
     Dates: start: 20081015, end: 20081021
  6. ADVATE [Suspect]
     Route: 042
     Dates: start: 20081024, end: 20081110
  7. ADVATE [Suspect]
     Route: 042
     Dates: start: 20081002, end: 20081006
  8. SOLETON [Concomitant]
     Indication: POSTOPERATIVE ANALGESIA
     Route: 048
     Dates: start: 20081008, end: 20081015
  9. SOLON [Concomitant]
     Indication: GASTRITIS PROPHYLAXIS
     Route: 048
     Dates: start: 20081008, end: 20081015
  10. DASEN [Concomitant]
     Indication: POSTOPERATIVE CARE
     Route: 048
     Dates: start: 20081008, end: 20081015
  11. LACTEC [Concomitant]
     Indication: PROPHYLAXIS AGAINST DEHYDRATION
     Route: 042
     Dates: start: 20081007, end: 20081007
  12. SOLITA-T3 [Concomitant]
     Indication: PROPHYLAXIS AGAINST DEHYDRATION
     Route: 042
     Dates: start: 20081007, end: 20081007
  13. PENICILLIN [Concomitant]
     Indication: INFECTION PROPHYLAXIS
     Route: 042
     Dates: start: 20081007, end: 20081009
  14. PANSPORIN T [Concomitant]
     Indication: INFECTION PROPHYLAXIS
     Route: 048
     Dates: start: 20081010, end: 20081015
  15. MOHRUS TAPE [Concomitant]
     Indication: ANALGESIC THERAPY
     Dosage: 1 TAPE
     Route: 061
     Dates: start: 20081008
  16. PURSENNID [Concomitant]
     Indication: CONSTIPATION PROPHYLAXIS
     Route: 048
  17. LOXONIN [Concomitant]
     Indication: OSTEOARTHRITIS
     Route: 048
     Dates: start: 20081024, end: 20081031
  18. GASTER D [Concomitant]
     Indication: PROPHYLAXIS
     Route: 048
     Dates: start: 20081024, end: 20081031
  19. CEFZON [Concomitant]
     Indication: INFECTION PROPHYLAXIS
     Route: 048
     Dates: start: 20081027, end: 20081102

REACTIONS (3)
  - Factor VIII inhibition [Not Recovered/Not Resolved]
  - Bleeding time prolonged [Unknown]
  - Wound haemorrhage [Unknown]
